FAERS Safety Report 10071770 (Version 1)
Quarter: 2014Q2

REPORT INFORMATION
  Report Type: Spontaneous
  Country: US (occurrence: US)
  Receive Date: 20140411
  Receipt Date: 20140411
  Transmission Date: 20141212
  Serious: Yes (Other)
  Sender: FDA-Public Use
  Company Number: US-BIOGENIDEC-2014BI033190

PATIENT
  Sex: Female

DRUGS (17)
  1. AVONEX [Suspect]
     Indication: MULTIPLE SCLEROSIS
     Route: 030
     Dates: start: 20011031, end: 20080602
  2. AVONEX [Suspect]
     Indication: MULTIPLE SCLEROSIS
     Route: 030
     Dates: start: 20110316
  3. TOPAMAX [Concomitant]
  4. NEXIUM [Concomitant]
  5. MIRALAX [Concomitant]
  6. CYMBALTA [Concomitant]
  7. SINEMET [Concomitant]
  8. ZOFRAN [Concomitant]
  9. ALBUTEROL INHALER [Concomitant]
  10. COLACE [Concomitant]
  11. LEVSIN [Concomitant]
  12. ZANAFLEX [Concomitant]
  13. ESTRATEST [Concomitant]
  14. ZANTAC [Concomitant]
  15. ADVAIR [Concomitant]
  16. LYRICA [Concomitant]
  17. REBIF [Concomitant]

REACTIONS (2)
  - Renal failure [Unknown]
  - Convulsion [Unknown]
